FAERS Safety Report 21228101 (Version 12)
Quarter: 2023Q1

REPORT INFORMATION
  Report Type: Report from Study
  Country: GB (occurrence: GB)
  Receive Date: 20220818
  Receipt Date: 20230221
  Transmission Date: 20230417
  Serious: Yes (Hospitalization)
  Sender: FDA-Public Use
  Company Number: GB-CELLTRION HEALTHCARE HUNGARY KFT-2022GB010821

PATIENT
  Age: 49 Year
  Sex: Male

DRUGS (51)
  1. DOXORUBICIN [Suspect]
     Active Substance: DOXORUBICIN
     Indication: B-cell lymphoma
     Dosage: 1 CYCLICAL, CYCLIC (6 CYCLE, RCHOP CHEMO -DOSE)
     Route: 065
     Dates: end: 20220512
  2. DOXORUBICIN [Suspect]
     Active Substance: DOXORUBICIN
     Dosage: UNK, CYCLIC (6 CYCLE, RCHOP CHEMO - DOSE)
     Route: 065
     Dates: end: 20220512
  3. DOXORUBICIN [Suspect]
     Active Substance: DOXORUBICIN
     Dosage: 6 CYCLE, RCHOP CHEMO - DOSE
     Route: 065
     Dates: end: 20220512
  4. DOXORUBICIN [Suspect]
     Active Substance: DOXORUBICIN
     Dosage: 6 CYCLE RCHOP CHEMO- DOSE
     Route: 065
     Dates: end: 20220512
  5. DOXORUBICIN [Suspect]
     Active Substance: DOXORUBICIN
     Dosage: MOST RECENT DOSE ON 12/MAY/2022
     Route: 065
     Dates: end: 20220512
  6. DOXORUBICIN [Suspect]
     Active Substance: DOXORUBICIN
     Dosage: RCHOP CHEMO - DOSE AND EXACT ROUTE NOT KNOWN
     Route: 065
     Dates: end: 20220512
  7. DOXORUBICIN [Suspect]
     Active Substance: DOXORUBICIN
     Dosage: DOSE:1, CYCLE/ RCHOP CHEMO - DOS
     Route: 065
     Dates: end: 20220512
  8. DOXORUBICIN [Suspect]
     Active Substance: DOXORUBICIN
     Dosage: 6 CYCLE, RCHOP CHEMO - DOSE, GASTRO RESISTANT
     Route: 065
     Dates: end: 20220512
  9. DOXORUBICIN [Suspect]
     Active Substance: DOXORUBICIN
     Dosage: 6 CYCLE, RCHOP CHEMO - DOSE
     Route: 065
     Dates: end: 20220512
  10. DOXORUBICIN [Suspect]
     Active Substance: DOXORUBICIN
     Dosage: CHOP CHEMO - DOSE AND EXACT ROUTE
     Route: 065
     Dates: end: 20220512
  11. DOXORUBICIN [Suspect]
     Active Substance: DOXORUBICIN
     Dosage: UNK
     Route: 065
     Dates: end: 20220512
  12. PREDNISOLONE [Suspect]
     Active Substance: PREDNISOLONE
     Indication: B-cell lymphoma
     Dosage: CYCLIC,6 CYCLE, RCHOP CHEMO-DOSE,GASTRO RESISTANT
     Route: 065
     Dates: end: 20220512
  13. PREDNISOLONE [Suspect]
     Active Substance: PREDNISOLONE
     Dosage: CYCLIC,6 CYCLE, RCHOP CHEMO-DOSE,GASTRO RESISTANT
     Route: 065
     Dates: end: 20220512
  14. PREDNISOLONE [Suspect]
     Active Substance: PREDNISOLONE
     Dosage: RCHOP CHEMO - DOSE AND EXACT ROUTE NOT
     Route: 065
     Dates: end: 20220512
  15. PREDNISOLONE [Suspect]
     Active Substance: PREDNISOLONE
     Dosage: CYCLIC (6 CYCLE, RCHOP CHEMO - DOSE)
     Route: 065
     Dates: end: 20220512
  16. PREDNISOLONE [Suspect]
     Active Substance: PREDNISOLONE
     Dosage: 6 CYCLE, RCHOP CHEMO - DOSE, GASTRO RESISTANT
     Route: 065
     Dates: end: 20220512
  17. PREDNISOLONE [Suspect]
     Active Substance: PREDNISOLONE
     Indication: B-cell lymphoma
     Dosage: 1 CYCLICAL,6 CYCLE, RCHOP CHEMO-DOSE,GASTRO
     Route: 042
     Dates: end: 20220512
  18. PREDNISOLONE [Suspect]
     Active Substance: PREDNISOLONE
     Dosage: RCHOP CHEMO - DOSE AND EXACT ROUTE NOT KNOWNCYCLIC (6 CYCLE, RCHOP CHEMO - DOSE, GASTRO RESISTANT)
     Route: 065
     Dates: end: 20220512
  19. CYCLOPHOSPHAMIDE [Suspect]
     Active Substance: CYCLOPHOSPHAMIDE
     Indication: B-cell lymphoma
     Dosage: UNK, CYCLIC (6 CYCLE, RCHOP CHEMO - DOSE)
     Route: 065
     Dates: end: 20220512
  20. CYCLOPHOSPHAMIDE [Suspect]
     Active Substance: CYCLOPHOSPHAMIDE
     Dosage: RCHOP CHEMO, MOST RECENT DOSE ON 12/MAY/2022
     Route: 065
     Dates: end: 20220512
  21. CYCLOPHOSPHAMIDE [Suspect]
     Active Substance: CYCLOPHOSPHAMIDE
     Dosage: 6 CYCLE, RCHOP CHEMO - DOSE
     Route: 065
     Dates: end: 20220512
  22. CYCLOPHOSPHAMIDE [Suspect]
     Active Substance: CYCLOPHOSPHAMIDE
     Dosage: 6 CYCLE, RCHOP CHEMO - DOSE
     Route: 065
     Dates: end: 20220512
  23. CYCLOPHOSPHAMIDE [Suspect]
     Active Substance: CYCLOPHOSPHAMIDE
     Dosage: 6 CYCLE, RCHOP CHEMO - DOSE
     Route: 065
     Dates: end: 20220512
  24. CYCLOPHOSPHAMIDE [Suspect]
     Active Substance: CYCLOPHOSPHAMIDE
     Dosage: RCHOP CHEMO - DOSE AND EXACT RO
     Route: 065
     Dates: end: 20220512
  25. CYCLOPHOSPHAMIDE [Suspect]
     Active Substance: CYCLOPHOSPHAMIDE
     Dosage: RCHOP CHEMO;
     Route: 065
     Dates: end: 20220512
  26. CYCLOPHOSPHAMIDE [Suspect]
     Active Substance: CYCLOPHOSPHAMIDE
     Dosage: RCHOP CHEMO - DOSE AND EXACT ROUTE N
     Route: 065
     Dates: end: 20220512
  27. CYCLOPHOSPHAMIDE [Suspect]
     Active Substance: CYCLOPHOSPHAMIDE
     Dosage: 6 CYCLE, RCHOP CHEMO - DOSE
     Route: 065
     Dates: end: 20220512
  28. CYCLOPHOSPHAMIDE [Suspect]
     Active Substance: CYCLOPHOSPHAMIDE
     Dosage: 6 CYCLE, RCHOP CHEMO - DOSE
     Route: 065
     Dates: end: 20220512
  29. VINCRISTINE [Suspect]
     Active Substance: VINCRISTINE
     Indication: B-cell lymphoma
     Dosage: 1, CYCLICAL, 6 CYCLE, RCHOP CHEMO-DOSE,GASTRO
     Route: 065
     Dates: end: 20220512
  30. VINCRISTINE [Suspect]
     Active Substance: VINCRISTINE
     Dosage: UNK, CYCLIC (6 CYCLE, RCHOP CHEMO - DOSE
     Route: 065
     Dates: end: 20220512
  31. VINCRISTINE [Suspect]
     Active Substance: VINCRISTINE
     Dosage: UNK (RCHOP CHEMO - DOSE AND EXACT ROUTE NOT)
     Route: 065
     Dates: end: 20220512
  32. VINCRISTINE [Suspect]
     Active Substance: VINCRISTINE
     Dosage: (6 CYCLE, RCHOP CHEMO - DOSE, GASTRO RESISTANT)
     Route: 065
     Dates: end: 20220512
  33. VINCRISTINE [Suspect]
     Active Substance: VINCRISTINE
     Dosage: RCHOP CHEMO
     Route: 065
     Dates: end: 20220512
  34. VINCRISTINE [Suspect]
     Active Substance: VINCRISTINE
     Dosage: RCHOP CHEMO - DOSE AND EXACT ROUTE NOT KNOWN
     Route: 065
     Dates: end: 20220512
  35. VINCRISTINE [Suspect]
     Active Substance: VINCRISTINE
     Dosage: UNK UNK, CYCLIC (6 CYCLE RCHOP CHEMO DOSE,
     Route: 065
     Dates: end: 20220512
  36. VINCRISTINE [Suspect]
     Active Substance: VINCRISTINE
     Dosage: UNK, CYCLIC (6 CYCLE, RCHOP CHEMO - DOSE,
     Route: 065
     Dates: end: 20220512
  37. RITUXIMAB [Suspect]
     Active Substance: RITUXIMAB
     Indication: B-cell lymphoma
     Dosage: CYCLIC (6 CYCLE, RCHOP CHEMO - DOSE)
     Route: 042
     Dates: end: 20220512
  38. RITUXIMAB [Suspect]
     Active Substance: RITUXIMAB
     Dosage: UNK, CYCLIC (6 CYCLE, RCHOP CHEMO - DOSE); INTRAVENOUS DRIP
     Route: 042
     Dates: end: 20220512
  39. RITUXIMAB [Suspect]
     Active Substance: RITUXIMAB
     Dosage: CYCLIC (6 CYCLE, RCHOP CHEMO - DOSE)
     Route: 042
     Dates: end: 20220512
  40. RITUXIMAB [Suspect]
     Active Substance: RITUXIMAB
     Dosage: CYCLIC (6 CYCLE, RCHOP CHEMO - DOSE)
     Route: 042
     Dates: end: 20220512
  41. RITUXIMAB [Suspect]
     Active Substance: RITUXIMAB
     Dosage: RCHOP CHEMO - DOSE AND EX
     Route: 042
     Dates: end: 20220512
  42. RITUXIMAB [Suspect]
     Active Substance: RITUXIMAB
     Dosage: RCHOP CHEMO - DOSE AND EXACT RO
     Route: 042
     Dates: end: 20220512
  43. RITUXIMAB [Suspect]
     Active Substance: RITUXIMAB
     Dosage: CYCLIC (6 CYCLE, RCHOP CHEMO - DOSE);
     Route: 042
     Dates: end: 20220512
  44. RITUXIMAB [Suspect]
     Active Substance: RITUXIMAB
     Dosage: RCHOP CHEMO
     Route: 042
     Dates: end: 20220512
  45. RITUXIMAB [Suspect]
     Active Substance: RITUXIMAB
     Indication: B-cell lymphoma
     Dosage: MOST RECENT DOSE ON 12/MAY/2022.
     Route: 065
     Dates: end: 20220512
  46. PREDNISOLONE [Suspect]
     Active Substance: PREDNISOLONE
     Indication: B-cell lymphoma
     Dosage: RCHOP CHEMO - DOSE AND EXACT R
     Route: 065
     Dates: end: 20220512
  47. PREDNISOLONE [Suspect]
     Active Substance: PREDNISOLONE
     Dosage: 6 CYCLE, RCHOP CHEMO - DOSE
     Route: 065
     Dates: end: 20220512
  48. PREDNISOLONE [Suspect]
     Active Substance: PREDNISOLONE
     Dosage: 6 CYCLE, RCHOP CHEMO - DOSE, GASTRO RESISTANT
     Route: 065
     Dates: end: 20220512
  49. PREDNISOLONE [Suspect]
     Active Substance: PREDNISOLONE
     Dosage: 6 CYCLE, RCHOP CHEMO - DOSE, GASTRO RESISTAN
     Route: 065
     Dates: end: 20220512
  50. PREDNISOLONE [Suspect]
     Active Substance: PREDNISOLONE
     Dosage: 6 CYCLE, RCHOP CHEMO - DOSE, GASTRO RESISTAN
     Route: 065
     Dates: end: 20220512
  51. PREDNISOLONE [Suspect]
     Active Substance: PREDNISOLONE
     Dosage: 6 CYCLE, RCHOP CHEMO - DOSE, GASTRO RESISTAN
     Route: 065
     Dates: end: 20220512

REACTIONS (10)
  - Cerebellar syndrome [Unknown]
  - Confusional state [Unknown]
  - Dysarthria [Unknown]
  - Lethargy [Unknown]
  - Back pain [Unknown]
  - Balance disorder [Unknown]
  - Abnormal behaviour [Unknown]
  - Off label use [Unknown]
  - Condition aggravated [Unknown]
  - Disease progression [Unknown]

NARRATIVE: CASE EVENT DATE: 20220514
